FAERS Safety Report 22364827 (Version 3)
Quarter: 2024Q4

REPORT INFORMATION
  Report Type: Report from Study
  Country: BR (occurrence: BR)
  Receive Date: 20230525
  Receipt Date: 20241207
  Transmission Date: 20250115
  Serious: Yes (Life-Threatening, Hospitalization, Other)
  Sender: CELLTRION
  Company Number: BR-CELLTRION INC.-2023BR010724

PATIENT

DRUGS (2)
  1. INFLIXIMAB-DYYB [Suspect]
     Active Substance: INFLIXIMAB-DYYB
     Indication: Crohn^s disease
     Dosage: 10 AMPOULES EVERY 1 MONTH
     Route: 042
     Dates: start: 20221028, end: 202212
  2. STELARA [Concomitant]
     Active Substance: USTEKINUMAB
     Indication: Crohn^s disease
     Route: 065

REACTIONS (5)
  - Incision site complication [Unknown]
  - Hypersensitivity [Unknown]
  - Drug effect less than expected [Unknown]
  - Intentional dose omission [Unknown]
  - Intentional product use issue [Unknown]
